FAERS Safety Report 26056142 (Version 2)
Quarter: 2025Q4

REPORT INFORMATION
  Report Type: Spontaneous
  Country: US (occurrence: None)
  Receive Date: 20251118
  Receipt Date: 20251124
  Transmission Date: 20260118
  Serious: Yes (Hospitalization, Other)
  Sender: UCB
  Company Number: US-UCBSA-2025072176

PATIENT

DRUGS (1)
  1. NEUPRO [Suspect]
     Active Substance: ROTIGOTINE
     Indication: Product used for unknown indication
     Dosage: 1 EVERY 24 HOURS (ONCE DAILY (QD))

REACTIONS (5)
  - Hospitalisation [Unknown]
  - Disability [Unknown]
  - Renal failure [Unknown]
  - Visual impairment [Unknown]
  - Product adhesion issue [Unknown]
